FAERS Safety Report 8160625-7 (Version None)
Quarter: 2012Q1

REPORT INFORMATION
  Report Type: 
  Country: None (occurrence: None)
  Receive Date: 20120223
  Receipt Date: 20120213
  Transmission Date: 20120608
  Serious: Yes (Hospitalization)
  Sender: FDA-Public Use
  Company Number: DE-ROCHE-1040194

PATIENT
  Age: 78 Year
  Sex: Male

DRUGS (5)
  1. RITUXAN [Suspect]
     Indication: B-CELL LYMPHOMA
     Route: 042
     Dates: start: 20110308, end: 20110621
  2. DAUNORUBICIN HCL [Concomitant]
  3. ACETONE [Concomitant]
  4. LISINOPRIL [Concomitant]
  5. TREANDA [Suspect]
     Indication: B-CELL LYMPHOMA
     Route: 042
     Dates: start: 20110310, end: 20110622

REACTIONS (1)
  - ACUTE MYELOID LEUKAEMIA [None]
